FAERS Safety Report 5767048-6 (Version None)
Quarter: 2008Q2

REPORT INFORMATION
  Report Type: 
  Country: None (occurrence: None)
  Receive Date: 20080612
  Receipt Date: 20080611
  Transmission Date: 20081010
  Serious: Yes (Other)
  Sender: FDA-Public Use
  Company Number: A0670837A

PATIENT
  Age: 60 Year
  Sex: Female

DRUGS (2)
  1. ALLI [Suspect]
  2. STEROIDS [Concomitant]

REACTIONS (22)
  - ABDOMINAL DISTENSION [None]
  - ADVERSE EVENT [None]
  - ASTHENIA [None]
  - ASTHMA [None]
  - CONFUSIONAL STATE [None]
  - CONSTIPATION [None]
  - COUGH [None]
  - DIZZINESS [None]
  - DRUG INEFFECTIVE [None]
  - EMOTIONAL DISTRESS [None]
  - EYE INJURY [None]
  - EYE SWELLING [None]
  - GASTROINTESTINAL DISORDER [None]
  - MALAISE [None]
  - MUSCLE SPASMS [None]
  - OCULAR HYPERAEMIA [None]
  - PAIN [None]
  - RECTAL DISCHARGE [None]
  - SINUSITIS [None]
  - STRESS [None]
  - UPPER RESPIRATORY TRACT INFECTION [None]
  - WEIGHT INCREASED [None]
